FAERS Safety Report 8582175-6 (Version None)
Quarter: 2012Q3

REPORT INFORMATION
  Report Type: 
  Country: None (occurrence: None)
  Receive Date: 20120727
  Receipt Date: 20120712
  Transmission Date: 20120928
  Serious: Yes (Other)
  Sender: FDA-Public Use
  Company Number: DE-1193192

PATIENT
  Sex: Male
  Weight: 20 kg

DRUGS (2)
  1. CYCLOGYL [Suspect]
     Indication: OPHTHALMOLOGICAL EXAMINATION
     Dosage: (1 GTT 1X/10 MINUTES OU OPHTHALMIC)
     Route: 047
     Dates: start: 20120712, end: 20120712
  2. ENCEPUR [Concomitant]

REACTIONS (4)
  - HALLUCINATION, VISUAL [None]
  - GAIT DISTURBANCE [None]
  - BODY TEMPERATURE INCREASED [None]
  - FLUSHING [None]
